FAERS Safety Report 24612920 (Version 1)
Quarter: 2024Q4

REPORT INFORMATION
  Report Type: Spontaneous
  Country: US (occurrence: None)
  Receive Date: 20241112
  Receipt Date: 20241112
  Transmission Date: 20250115
  Serious: No
  Sender: Public
  Company Number: None

PATIENT
  Age: 57 Year
  Sex: Male

DRUGS (11)
  1. XPHOZAH [Suspect]
     Active Substance: TENAPANOR HYDROCHLORIDE
     Indication: Blood phosphorus abnormal
     Dosage: FREQUENCY : TWICE A DAY;?
     Route: 048
     Dates: start: 20240928, end: 20241001
  2. ACETAMINOPHEN [Concomitant]
     Active Substance: ACETAMINOPHEN
  3. AMLODIPINE BESYLATE [Concomitant]
     Active Substance: AMLODIPINE BESYLATE
  4. ATORVASTATIN [Concomitant]
     Active Substance: ATORVASTATIN
  5. CALCITRIOL [Concomitant]
     Active Substance: CALCITRIOL
  6. CAPSAICIN [Concomitant]
     Active Substance: CAPSAICIN
  7. CELECOXIB [Concomitant]
     Active Substance: CELECOXIB
  8. CINACALCET [Concomitant]
     Active Substance: CINACALCET
  9. COLACE [Concomitant]
     Active Substance: DOCUSATE SODIUM
  10. FENOFIBRATE [Concomitant]
     Active Substance: FENOFIBRATE
  11. FUROSEMIDE [Concomitant]
     Active Substance: FUROSEMIDE

REACTIONS (2)
  - Diarrhoea [None]
  - Therapy interrupted [None]

NARRATIVE: CASE EVENT DATE: 20241001
